FAERS Safety Report 13418981 (Version 2)
Quarter: 2017Q2

REPORT INFORMATION
  Report Type: Spontaneous
  Country: US (occurrence: US)
  Receive Date: 20170407
  Receipt Date: 20170421
  Transmission Date: 20170830
  Serious: Yes (Other)
  Sender: FDA-Public Use
  Company Number: PHEH2017US009238

PATIENT
  Age: 75 Year
  Sex: Female

DRUGS (2)
  1. LETROZOLE. [Suspect]
     Active Substance: LETROZOLE
     Indication: BREAST CANCER METASTATIC
     Dosage: 2.5 MG, QD
     Route: 065
     Dates: start: 201607, end: 20170117
  2. IBRANCE [Suspect]
     Active Substance: PALBOCICLIB
     Indication: BREAST CANCER METASTATIC
     Dosage: 125 MG, QD FOR 21 DAYS ON 7 DAYS OFF EVERY 28 DAYS
     Route: 048
     Dates: start: 20161018

REACTIONS (10)
  - Pharyngitis [Unknown]
  - Leukopenia [Recovered/Resolved]
  - Fatigue [Unknown]
  - Oral pain [Unknown]
  - Thrombocytopenia [Unknown]
  - Sciatica [Unknown]
  - Epistaxis [Unknown]
  - Back pain [Unknown]
  - Neoplasm [Unknown]
  - Aphthous ulcer [Recovering/Resolving]

NARRATIVE: CASE EVENT DATE: 201612
